FAERS Safety Report 23238423 (Version 2)
Quarter: 2023Q4

REPORT INFORMATION
  Report Type: Spontaneous
  Country: US (occurrence: US)
  Receive Date: 20231129
  Receipt Date: 20231226
  Transmission Date: 20240109
  Serious: Yes (Other)
  Sender: FDA-Public Use
  Company Number: US-PFM-2023-06561

PATIENT
  Sex: Female
  Weight: 9.342 kg

DRUGS (1)
  1. HEMANGEOL [Suspect]
     Active Substance: PROPRANOLOL HYDROCHLORIDE
     Indication: Haemangioma
     Dosage: 3.2 ML, BID (2/DAY)
     Route: 048
     Dates: start: 20230105

REACTIONS (4)
  - Ulcerated haemangioma [Unknown]
  - Skin discolouration [Unknown]
  - Piloerection [Unknown]
  - Condition aggravated [Unknown]
